FAERS Safety Report 6972801-7 (Version None)
Quarter: 2010Q3

REPORT INFORMATION
  Report Type: 
  Country: None (occurrence: None)
  Receive Date: 20100909
  Receipt Date: 20100829
  Transmission Date: 20110219
  Serious: Yes (Other)
  Sender: FDA-Public Use
  Company Number: US-PFIZER INC-2010109141

PATIENT
  Sex: Male
  Weight: 206.35 kg

DRUGS (1)
  1. VIAGRA [Suspect]
     Indication: ERECTILE DYSFUNCTION
     Dosage: 100 MG, UNK
     Dates: start: 20100828

REACTIONS (2)
  - ERECTION INCREASED [None]
  - INCORRECT DOSE ADMINISTERED [None]
